FAERS Safety Report 7919035-7 (Version None)
Quarter: 2011Q4

REPORT INFORMATION
  Report Type: 
  Country: None (occurrence: None)
  Receive Date: 20111116
  Receipt Date: 20111104
  Transmission Date: 20120403
  Serious: Yes (Other)
  Sender: FDA-Public Use
  Company Number: US-ELI_LILLY_AND_COMPANY-US201109008453

PATIENT
  Sex: Female

DRUGS (11)
  1. FORTEO [Suspect]
     Dosage: 20 UG, QD
     Route: 065
  2. MELOXCAM [Concomitant]
  3. CITALOPRAM HYDROBROMIDE [Concomitant]
  4. ULTRASE MT20 [Concomitant]
  5. SYNTHROID [Concomitant]
  6. PLAVIX [Concomitant]
  7. LUNESTA [Concomitant]
     Dosage: 3 MG, UNK
  8. NITROFUR-C [Concomitant]
  9. FAMOTIDINE [Concomitant]
  10. ATENOLOL [Concomitant]
  11. FORTEO [Suspect]
     Indication: OSTEOPOROSIS
     Dosage: 20 UG, QD
     Dates: start: 20100801

REACTIONS (6)
  - FALL [None]
  - RIB FRACTURE [None]
  - INJECTION SITE HAEMATOMA [None]
  - LOSS OF CONSCIOUSNESS [None]
  - PAIN [None]
  - DIZZINESS [None]
